FAERS Safety Report 16256105 (Version 1)
Quarter: 2019Q2

REPORT INFORMATION
  Report Type: Spontaneous
  Country: US (occurrence: US)
  Receive Date: 20190326
  Receipt Date: 20190326
  Transmission Date: 20190711
  Serious: Yes (Other)
  Sender: FDA-Public Use
  Company Number: None

PATIENT
  Sex: Male

DRUGS (1)
  1. ALYQ [Suspect]
     Active Substance: TADALAFIL
     Indication: PULMONARY ARTERIAL HYPERTENSION
     Route: 048
     Dates: start: 20190218

REACTIONS (7)
  - Nausea [None]
  - Intestinal obstruction [None]
  - Vomiting [None]
  - Headache [None]
  - Nasal congestion [None]
  - Dyspnoea [None]
  - Abdominal distension [None]
